FAERS Safety Report 15572317 (Version 1)
Quarter: 2018Q4

REPORT INFORMATION
  Report Type: Spontaneous
  Country: CZ (occurrence: CZ)
  Receive Date: 20181031
  Receipt Date: 20181031
  Transmission Date: 20190205
  Serious: Yes (Other)
  Sender: FDA-Public Use
  Company Number: PHHY2018CZ141915

PATIENT
  Sex: Female

DRUGS (1)
  1. EXTAVIA [Suspect]
     Active Substance: INTERFERON BETA-1B
     Indication: MULTIPLE SCLEROSIS
     Dosage: UNK
     Route: 065
     Dates: start: 201310, end: 201412

REACTIONS (4)
  - Central nervous system lesion [Unknown]
  - Dermatosis [Not Recovered/Not Resolved]
  - Demyelination [Unknown]
  - CSF oligoclonal band present [Unknown]

NARRATIVE: CASE EVENT DATE: 201504
